FAERS Safety Report 23447217 (Version 1)
Quarter: 2024Q1

REPORT INFORMATION
  Report Type: Spontaneous
  Country: US (occurrence: US)
  Receive Date: 20240126
  Receipt Date: 20240126
  Transmission Date: 20240410
  Serious: Yes (Death, Life-Threatening, Hospitalization, Other)
  Sender: FDA-Public Use
  Company Number: US-009507513-2401USA013436

PATIENT
  Age: 68 Year
  Sex: Male

DRUGS (1)
  1. KEYTRUDA [Suspect]
     Active Substance: PEMBROLIZUMAB
     Indication: Renal cancer
     Dosage: EVERY 3 WEEKS
     Route: 042
     Dates: start: 20230911, end: 20230911

REACTIONS (1)
  - Cardiac infection [Fatal]

NARRATIVE: CASE EVENT DATE: 20230930
